FAERS Safety Report 8539346-4 (Version None)
Quarter: 2012Q3

REPORT INFORMATION
  Report Type: 
  Country: None (occurrence: None)
  Receive Date: 20120726
  Receipt Date: 20110728
  Transmission Date: 20120928
  Serious: No
  Sender: FDA-Public Use
  Company Number: US-ASTRAZENECA-2011SE45264

PATIENT
  Age: 45 Year
  Sex: Male

DRUGS (2)
  1. 19 MEDS [Concomitant]
  2. SEROQUEL [Suspect]
     Indication: INSOMNIA
     Route: 048
     Dates: start: 20110101

REACTIONS (5)
  - OFF LABEL USE [None]
  - DRUG DOSE OMISSION [None]
  - CHEST PAIN [None]
  - INSOMNIA [None]
  - HEADACHE [None]
